FAERS Safety Report 7573130-3 (Version None)
Quarter: 2011Q2

REPORT INFORMATION
  Report Type: 
  Country: None (occurrence: None)
  Receive Date: 20110627
  Receipt Date: 20110620
  Transmission Date: 20111010
  Serious: Yes (Other)
  Sender: FDA-Public Use
  Company Number: IE-PFIZER INC-2011137179

PATIENT
  Age: 52 Year
  Sex: Male

DRUGS (8)
  1. ACETYLSALICYLIC ACID [Concomitant]
     Dosage: UNK
     Dates: start: 20100525
  2. ATORVASTATIN CALCIUM [Suspect]
     Dosage: 80 MG, UNK
  3. PRAVASTATIN SODIUM [Suspect]
     Indication: MYOCARDIAL INFARCTION
     Dosage: 20 MG, 1 DAY
     Route: 048
  4. ROSUVASTATIN CALCIUM [Suspect]
     Dosage: 20 MG, UNK
  5. METOPROLOL [Concomitant]
     Dosage: UNK
     Dates: start: 20100521, end: 20100526
  6. PRAVASTATIN SODIUM [Suspect]
     Dosage: 10 MG, 1X/DAY
     Dates: start: 20101022
  7. PLAVIX [Concomitant]
     Dosage: UNK
     Dates: start: 20100525
  8. RAMIPRIL [Concomitant]
     Dosage: UNK
     Dates: start: 20100525

REACTIONS (17)
  - OEDEMA PERIPHERAL [None]
  - FATIGUE [None]
  - HEPATIC ENZYME INCREASED [None]
  - MYALGIA [None]
  - SNORING [None]
  - MUSCLE DISORDER [None]
  - SLEEP APNOEA SYNDROME [None]
  - BLOOD CREATINE PHOSPHOKINASE INCREASED [None]
  - JOINT STIFFNESS [None]
  - BLOOD CREATININE INCREASED [None]
  - MYOCARDIAL INFARCTION [None]
  - DYSARTHRIA [None]
  - BRADYCARDIA [None]
  - MUSCLE SPASMS [None]
  - ARTHRALGIA [None]
  - SINUS DISORDER [None]
  - LOCAL SWELLING [None]
